FAERS Safety Report 6683134-0 (Version None)
Quarter: 2010Q2

REPORT INFORMATION
  Report Type: 
  Country: None (occurrence: None)
  Receive Date: 20100415
  Receipt Date: 20100412
  Transmission Date: 20101027
  Serious: Yes (Hospitalization)
  Sender: FDA-Public Use
  Company Number: CHPA2010US06565

PATIENT
  Age: 57 Year
  Sex: Female
  Weight: 57.143 kg

DRUGS (3)
  1. SLOW FE IRON TABLETS (NCH) [Suspect]
     Indication: MINERAL SUPPLEMENTATION
     Dosage: 142 MG, BID
     Route: 048
     Dates: start: 20100126, end: 20100201
  2. SLOW FE IRON TABLETS (NCH) [Suspect]
     Dosage: 142 MG, QD
     Route: 048
     Dates: end: 20100121
  3. SYNTHROID [Concomitant]
     Route: 048

REACTIONS (1)
  - RENAL TRANSPLANT [None]
